FAERS Safety Report 24024597 (Version 4)
Quarter: 2024Q3

REPORT INFORMATION
  Report Type: Report from Study
  Country: RS (occurrence: RS)
  Receive Date: 20240628
  Receipt Date: 20240710
  Transmission Date: 20241017
  Serious: No
  Sender: ROCHE
  Company Number: RS-ROCHE-3546206

PATIENT
  Age: 52 Year
  Sex: Male
  Weight: 81.0 kg

DRUGS (10)
  1. ALECTINIB [Suspect]
     Active Substance: ALECTINIB
     Indication: Lung cancer metastatic
     Route: 048
     Dates: start: 20220411
  2. ALECTINIB [Suspect]
     Active Substance: ALECTINIB
     Indication: Lung neoplasm malignant
     Route: 065
     Dates: start: 20200707
  3. VILANTEROL [Concomitant]
     Active Substance: VILANTEROL
     Indication: Chronic obstructive pulmonary disease
     Route: 055
  4. HERBALS\SILYBUM MARIANUM WHOLE [Concomitant]
     Active Substance: HERBALS\SILYBUM MARIANUM WHOLE
     Route: 048
     Dates: start: 20200720
  5. UMECLIDINIUM BROMIDE [Concomitant]
     Active Substance: UMECLIDINIUM BROMIDE
     Indication: Chronic obstructive pulmonary disease
     Route: 055
  6. FENOTEROL [Concomitant]
     Active Substance: FENOTEROL
     Indication: Chronic obstructive pulmonary disease
     Route: 055
  7. IPRATROPIUM BROMIDE [Concomitant]
     Active Substance: IPRATROPIUM BROMIDE\IPRATROPIUM BROMIDE ANHYDROUS
     Indication: Chronic obstructive pulmonary disease
     Route: 055
  8. PANTOPRAZOLE SODIUM [Concomitant]
     Active Substance: PANTOPRAZOLE SODIUM
     Route: 048
  9. NAPROXEN SODIUM [Concomitant]
     Active Substance: NAPROXEN\NAPROXEN SODIUM
     Indication: Abdominal pain upper
     Route: 048
     Dates: start: 20240126
  10. LORLATINIB [Concomitant]
     Active Substance: LORLATINIB
     Dates: start: 20240330, end: 20240429

REACTIONS (1)
  - Anaemia [Not Recovered/Not Resolved]

NARRATIVE: CASE EVENT DATE: 20231005
